FAERS Safety Report 21060506 (Version 1)
Quarter: 2022Q3

REPORT INFORMATION
  Report Type: Spontaneous
  Country: US (occurrence: US)
  Receive Date: 20220708
  Receipt Date: 20220708
  Transmission Date: 20221027
  Serious: No
  Sender: FDA-Public Use
  Company Number: US-009507513-2206USA003920

PATIENT
  Age: 11 Year
  Sex: Male

DRUGS (3)
  1. PROQUAD [Suspect]
     Active Substance: MEASLES VIRUS STRAIN ENDERS^ ATTENUATED EDMONSTON LIVE ANTIGEN\MUMPS VIRUS STRAIN B LEVEL JERYL LYNN
     Indication: Prophylaxis
     Dosage: .5 MILLILITER
     Route: 058
     Dates: start: 20220608
  2. STERILE DILUENT (WATER) [Suspect]
     Active Substance: WATER
     Dosage: NOT PROVIDED
     Dates: start: 20220608, end: 20220608
  3. MENACTRA [Concomitant]
     Active Substance: NEISSERIA MENINGITIDIS GROUP A CAPSULAR POLYSACCHARIDE DIPHTHERIA TOXOID CONJUGATE ANTIGEN\NEISSERIA
     Indication: Prophylaxis
     Dosage: NOT PROVIDED
     Dates: start: 20220608

REACTIONS (2)
  - Product preparation error [Unknown]
  - No adverse event [Unknown]

NARRATIVE: CASE EVENT DATE: 20220608
